FAERS Safety Report 7735021-4 (Version None)
Quarter: 2011Q3

REPORT INFORMATION
  Report Type: 
  Country: None (occurrence: None)
  Receive Date: 20110907
  Receipt Date: 20110502
  Transmission Date: 20111222
  Serious: Yes (Life-Threatening, Hospitalization)
  Sender: FDA-Public Use
  Company Number: GB-ASTRAZENECA-1992AP65457

PATIENT
  Age: 20 Month
  Sex: Female
  Weight: 12 kg

DRUGS (6)
  1. AMPICILLIN SODIUM [Concomitant]
     Route: 042
     Dates: start: 19911220, end: 19911222
  2. CHLORAL HYDRATE [Concomitant]
     Route: 054
     Dates: start: 19911220, end: 19911230
  3. HALOTHANE [Concomitant]
     Route: 055
     Dates: start: 19911220, end: 19911220
  4. DIPRIVAN [Suspect]
     Indication: EPIGLOTTITIS
     Dosage: 60-120  MG/HR
     Route: 042
     Dates: start: 19911220, end: 19911221
  5. DIPRIVAN [Suspect]
     Indication: SEDATION
     Dosage: 60-120  MG/HR
     Route: 042
     Dates: start: 19911220, end: 19911221
  6. CHLORAMPHENICOL [Concomitant]
     Route: 042
     Dates: start: 19911220, end: 19911222

REACTIONS (2)
  - SEPSIS [None]
  - PROPOFOL INFUSION SYNDROME [None]
